FAERS Safety Report 6387560-9 (Version None)
Quarter: 2009Q4

REPORT INFORMATION
  Report Type: 
  Country: None (occurrence: None)
  Receive Date: 20091005
  Receipt Date: 20090923
  Transmission Date: 20100525
  Serious: Yes (Other)
  Sender: FDA-Public Use
  Company Number: US-CELGENEUS-163-21880-09091912

PATIENT
  Sex: Female

DRUGS (3)
  1. REVLIMID [Suspect]
     Indication: MULTIPLE MYELOMA
     Route: 048
     Dates: start: 20081201
  2. REVLIMID [Suspect]
     Dosage: 20, 15, 5 MG
     Route: 048
     Dates: start: 20070901
  3. REVLIMID [Suspect]
     Route: 048
     Dates: start: 20080401

REACTIONS (1)
  - BREAST CANCER [None]
